FAERS Safety Report 25547102 (Version 1)
Quarter: 2025Q3

REPORT INFORMATION
  Report Type: Report from Study
  Country: BR (occurrence: BR)
  Receive Date: 20250714
  Receipt Date: 20250714
  Transmission Date: 20251020
  Serious: Yes (Hospitalization, Other)
  Sender: BIOVITRUM
  Company Number: BR-AstraZeneca-CH-00905578A

PATIENT
  Sex: Male
  Weight: 4.05 kg

DRUGS (1)
  1. PALIVIZUMAB [Suspect]
     Active Substance: PALIVIZUMAB
     Indication: Respiratory syncytial virus immunisation
     Route: 065
     Dates: start: 202504

REACTIONS (4)
  - Bronchiolitis [Unknown]
  - Pneumonia [Unknown]
  - Pulmonary congestion [Unknown]
  - Product dose omission issue [Unknown]

NARRATIVE: CASE EVENT DATE: 20250601
